FAERS Safety Report 25382330 (Version 1)
Quarter: 2025Q2

REPORT INFORMATION
  Report Type: Spontaneous
  Country: US (occurrence: US)
  Receive Date: 20250601
  Receipt Date: 20250601
  Transmission Date: 20250716
  Serious: No
  Sender: SANOFI AVENTIS
  Company Number: US-SA-2025SA155277

PATIENT
  Age: 52 Year
  Sex: Female

DRUGS (3)
  1. DUPIXENT [Suspect]
     Active Substance: DUPILUMAB
     Indication: Asthma
     Dosage: 300 MG, QOW
     Route: 058
     Dates: start: 202206
  2. TREMFYA [Concomitant]
     Active Substance: GUSELKUMAB
     Indication: Psoriatic arthropathy
  3. COSENTYX [Concomitant]
     Active Substance: SECUKINUMAB

REACTIONS (2)
  - Infection [Unknown]
  - Seasonal allergy [Unknown]
